FAERS Safety Report 4613232-4 (Version None)
Quarter: 2005Q1

REPORT INFORMATION
  Report Type: 
  Country: None (occurrence: None)
  Receive Date: 20050315
  Receipt Date: 20050302
  Transmission Date: 20050727
  Serious: Yes (Hospitalization, Other)
  Sender: FDA-Public Use
  Company Number: 2005042106

PATIENT
  Sex: Female

DRUGS (1)
  1. PREDNISONE [Suspect]
     Indication: VASCULITIS
     Dates: start: 19940101

REACTIONS (26)
  - ASTHENIA [None]
  - BACTERIAL SEPSIS [None]
  - BONE DISORDER [None]
  - CATARACT [None]
  - COUGH [None]
  - DECREASED IMMUNE RESPONSIVENESS [None]
  - DYSPHAGIA [None]
  - EPISTAXIS [None]
  - HAEMATOMA [None]
  - IMPAIRED HEALING [None]
  - INFLAMMATION [None]
  - JAW DISORDER [None]
  - LUNG INFECTION [None]
  - MENTAL DISORDER [None]
  - MUSCLE SPASMS [None]
  - NOSE DEFORMITY [None]
  - OSTEOPOROSIS [None]
  - PAIN [None]
  - RHEUMATOID ARTHRITIS [None]
  - RHINITIS [None]
  - SHOCK [None]
  - SKIN DISORDER [None]
  - TENDON DISORDER [None]
  - TOOTH INFECTION [None]
  - UTERINE PROLAPSE [None]
  - WOUND [None]
